FAERS Safety Report 13598888 (Version 1)
Quarter: 2017Q2

REPORT INFORMATION
  Report Type: Spontaneous
  Country: FR (occurrence: FR)
  Receive Date: 20170531
  Receipt Date: 20170531
  Transmission Date: 20170830
  Serious: Yes (Hospitalization)
  Sender: FDA-Public Use
  Company Number: FR-PFIZER INC-2017235099

PATIENT
  Age: 11 Year
  Sex: Male
  Weight: 45 kg

DRUGS (5)
  1. VINCRISTINE HOSPIRA [Suspect]
     Active Substance: VINCRISTINE
     Dosage: 1 DF, 2MG/2ML, SINGLE
     Route: 042
     Dates: start: 20170405
  2. VINCRISTINE HOSPIRA [Suspect]
     Active Substance: VINCRISTINE
     Dosage: 1 DF, 2MG/2ML, SINGLE
     Route: 042
     Dates: start: 20170412
  3. VINCRISTINE HOSPIRA [Suspect]
     Active Substance: VINCRISTINE
     Dosage: 1 DF, 2MG/2ML, SINGLE
     Route: 042
     Dates: start: 20170510
  4. CISPLATIN. [Suspect]
     Active Substance: CISPLATIN
     Indication: MEDULLOBLASTOMA
     Dosage: SINGLE ADMINISTRATION
     Dates: start: 20170329
  5. VINCRISTINE HOSPIRA [Suspect]
     Active Substance: VINCRISTINE
     Indication: MEDULLOBLASTOMA
     Dosage: 1 DF, 2MG/2ML, SINGLE INTAKE
     Route: 042
     Dates: start: 20170329

REACTIONS (2)
  - Renal failure [Unknown]
  - Hypokalaemia [Unknown]
